FAERS Safety Report 9769157 (Version 1)
Quarter: 2013Q4

REPORT INFORMATION
  Report Type: Spontaneous
  Country: GB (occurrence: GB)
  Receive Date: 20131218
  Receipt Date: 20131218
  Transmission Date: 20140711
  Serious: Yes (Disabling)
  Sender: FDA-Public Use
  Company Number: GB-JNJFOC-20131206019

PATIENT
  Age: 76 Year
  Sex: Male

DRUGS (1)
  1. XEPLION [Suspect]
     Indication: SCHIZOPHRENIA
     Route: 030
     Dates: start: 2012, end: 20131128

REACTIONS (2)
  - Pancytopenia [Not Recovered/Not Resolved]
  - Treatment noncompliance [Unknown]
